FAERS Safety Report 10559862 (Version 1)
Quarter: 2014Q4

REPORT INFORMATION
  Report Type: Spontaneous
  Country: US (occurrence: None)
  Receive Date: 20141031
  Receipt Date: 20141031
  Transmission Date: 20150529
  Serious: No
  Sender: FDA-Public Use
  Company Number: None

PATIENT
  Age: 58 Year
  Sex: Male
  Weight: 128.82 kg

DRUGS (1)
  1. CHLORHEXIDINE GLUCCONATE 0.12%? [Suspect]
     Active Substance: CHLORHEXIDINE GLUCONATE
     Indication: DENTAL DISORDER PROPHYLAXIS
     Dosage: PEROEX, TWICE DAILY, GARGLE AND EXPECTORATE

REACTIONS (1)
  - Intercepted drug dispensing error [None]

NARRATIVE: CASE EVENT DATE: 20141029
